FAERS Safety Report 10660425 (Version 1)
Quarter: 2014Q4

REPORT INFORMATION
  Report Type: Spontaneous
  Country: US (occurrence: US)
  Receive Date: 20141217
  Receipt Date: 20141217
  Transmission Date: 20150529
  Serious: No
  Sender: FDA-Public Use
  Company Number: US-GLAXOSMITHKLINE-A1084637A

PATIENT

DRUGS (1)
  1. VOTRIENT [Suspect]
     Active Substance: PAZOPANIB HYDROCHLORIDE
     Indication: PRODUCT USED FOR UNKNOWN INDICATION
     Dosage: 200  MG TABLET AT 800 MG DAILY
     Route: 048
     Dates: start: 20140522

REACTIONS (5)
  - Medial tibial stress syndrome [Unknown]
  - Musculoskeletal pain [Recovered/Resolved]
  - Hypertension [Unknown]
  - Fatigue [Unknown]
  - Skin exfoliation [Unknown]
